FAERS Safety Report 9110283 (Version 3)
Quarter: 2015Q4

REPORT INFORMATION
  Report Type: Spontaneous
  Country: US (occurrence: US)
  Receive Date: 20130222
  Receipt Date: 20151020
  Transmission Date: 20160305
  Serious: Yes (Hospitalization, Other)
  Sender: FDA-Public Use
  Company Number: US-BAYER-2013-020959

PATIENT
  Age: 36 Year
  Sex: Female
  Weight: 87.75 kg

DRUGS (9)
  1. XANAX [Concomitant]
     Active Substance: ALPRAZOLAM
     Dosage: 0.5 MG, PRN
     Route: 048
     Dates: start: 20110924
  2. AZITHROMYCIN [Concomitant]
     Active Substance: AZITHROMYCIN ANHYDROUS
  3. LOPRESSOR [Concomitant]
     Active Substance: METOPROLOL TARTRATE
  4. MORPHINE [Concomitant]
     Active Substance: MORPHINE
  5. DIFLUCAN [Concomitant]
     Active Substance: FLUCONAZOLE
  6. PAXIL [Concomitant]
     Active Substance: PAROXETINE HYDROCHLORIDE
     Dosage: 25 MG, MORNING
     Route: 048
     Dates: start: 20110924
  7. MIRENA [Suspect]
     Active Substance: LEVONORGESTREL
     Indication: CONTRACEPTION
     Dosage: 20 MCG/24HR, CONT
     Route: 015
     Dates: start: 20061130, end: 20110924
  8. SYMBYAX [Concomitant]
     Active Substance: FLUOXETINE HYDROCHLORIDE\OLANZAPINE
  9. ZOFRAN [Concomitant]
     Active Substance: ONDANSETRON HYDROCHLORIDE

REACTIONS (5)
  - Pain [Recovered/Resolved]
  - Uterine perforation [Recovered/Resolved]
  - Injury [Recovered/Resolved]
  - Suicidal ideation [None]
  - Device issue [None]

NARRATIVE: CASE EVENT DATE: 200611
